FAERS Safety Report 15026639 (Version 1)
Quarter: 2018Q2

REPORT INFORMATION
  Report Type: Report from Study
  Country: US (occurrence: US)
  Receive Date: 20180618
  Receipt Date: 20180618
  Transmission Date: 20180711
  Serious: Yes (Hospitalization, Other)
  Sender: FDA-Public Use
  Company Number: US-SHIRE-US201821715

PATIENT
  Sex: Female

DRUGS (1)
  1. HUMAN IMMUNOGLOBULIN; HYALURONIDASE [Suspect]
     Active Substance: HUMAN IMMUNOGLOBULIN G\HYALURONIDASE RECOMBINANT HUMAN
     Indication: PRIMARY IMMUNODEFICIENCY SYNDROME
     Route: 065

REACTIONS (9)
  - Nerve injury [Unknown]
  - Pain [Unknown]
  - Hypoaesthesia [Unknown]
  - Paralysis [Unknown]
  - Bedridden [Unknown]
  - Hypersensitivity [Unknown]
  - Myalgia [Unknown]
  - Swelling [Unknown]
  - Burning sensation [Unknown]
